FAERS Safety Report 21930176 (Version 3)
Quarter: 2023Q1

REPORT INFORMATION
  Report Type: Spontaneous
  Country: JP (occurrence: JP)
  Receive Date: 20230131
  Receipt Date: 20230303
  Transmission Date: 20230418
  Serious: Yes (Death, Hospitalization, Other)
  Sender: FDA-Public Use
  Company Number: JP-ABBVIE-4141609

PATIENT
  Age: 68 Year
  Sex: Female
  Weight: 46 kg

DRUGS (20)
  1. HUMIRA [Suspect]
     Active Substance: ADALIMUMAB
     Indication: Colitis ulcerative
     Dosage: 40-80 MG/2 WEEKS, FORM STRENGTH: 40  MILLIGRAM
     Route: 058
     Dates: start: 20220304, end: 202206
  2. HUMIRA [Suspect]
     Active Substance: ADALIMUMAB
     Dosage: 40-80 MG/2 WEEKS, FORM STRENGTH: 40  MILLIGRAM
     Route: 058
     Dates: start: 20210804, end: 20220107
  3. HUMIRA [Suspect]
     Active Substance: ADALIMUMAB
     Dosage: FORM STRENGTH: 40  MILLIGRAM
     Route: 058
     Dates: start: 202107
  4. PREDNISOLONE [Concomitant]
     Active Substance: PREDNISOLONE
     Indication: Colitis ulcerative
     Dosage: 5 TO 30 MG/DAY
     Route: 048
     Dates: start: 20171031, end: 20220704
  5. SULFAMETHOXAZOLE AND TRIMETHOPRIM [Concomitant]
     Active Substance: SULFAMETHOXAZOLE\TRIMETHOPRIM
     Indication: Prophylaxis
     Dosage: START DATE: 2022
     Route: 048
     Dates: end: 20220704
  6. SULFAMETHOXAZOLE AND TRIMETHOPRIM [Concomitant]
     Active Substance: SULFAMETHOXAZOLE\TRIMETHOPRIM
     Indication: Prophylaxis
     Dosage: START DATE TEXT: AROUND 2017 TO 2018
     Dates: start: 2017, end: 202206
  7. MESALAMINE [Concomitant]
     Active Substance: MESALAMINE
     Indication: Colitis ulcerative
     Dosage: 4000 MILLIGRAM
     Route: 048
     Dates: start: 201805, end: 20220704
  8. MANIDIPINE HYDROCHLORIDE [Concomitant]
     Active Substance: MANIDIPINE HYDROCHLORIDE
     Indication: Hypertension
     Dosage: 20 UNKNOWN?START DATE: 2022
     Route: 048
     Dates: end: 20220704
  9. MANIDIPINE HYDROCHLORIDE [Concomitant]
     Active Substance: MANIDIPINE HYDROCHLORIDE
     Indication: Hypertension
     Dosage: START DATE TEXT: AROUND 2017 TO 2018
     Dates: start: 2017, end: 202206
  10. AZILSARTAN KAMEDOXOMIL [Concomitant]
     Active Substance: AZILSARTAN KAMEDOXOMIL
     Indication: Product used for unknown indication
     Dates: end: 202206
  11. AZILSARTAN KAMEDOXOMIL [Concomitant]
     Active Substance: AZILSARTAN KAMEDOXOMIL
     Indication: Product used for unknown indication
     Dosage: START DATE TEXT: AROUND 2017 TO 2018
     Dates: start: 2017, end: 202206
  12. LEVOTHYROXINE SODIUM [Concomitant]
     Active Substance: LEVOTHYROXINE SODIUM
     Indication: Product used for unknown indication
     Dosage: START DATE TEXT: AROUND 2017 TO 2018
     Dates: start: 2017
  13. ICOSAPENT ETHYL [Concomitant]
     Active Substance: ICOSAPENT ETHYL
     Indication: Dyslipidaemia
     Dosage: TIME INTERVAL: 0.33333333 DAYS: 1800 MILLIGRAM?START DATE: 2022
     Route: 048
     Dates: end: 20220704
  14. ICOSAPENT ETHYL [Concomitant]
     Active Substance: ICOSAPENT ETHYL
     Indication: Dyslipidaemia
     Dosage: START DATE TEXT: AROUND 2017 TO 2018
     Dates: start: 2017, end: 202206
  15. RABEPRAZOLE SODIUM [Concomitant]
     Active Substance: RABEPRAZOLE SODIUM
     Indication: Prophylaxis
     Dosage: 10 MILLIGRAM
     Route: 048
  16. RABEPRAZOLE SODIUM [Concomitant]
     Active Substance: RABEPRAZOLE SODIUM
     Indication: Product used for unknown indication
     Dosage: START DATE TEXT: AROUND 2017 TO 2018
     Dates: start: 2017
  17. BEZAFIBRATE [Concomitant]
     Active Substance: BEZAFIBRATE
     Indication: Dyslipidaemia
     Dosage: 400 MILLIGRAM?START DATE: 2022
     Route: 048
     Dates: end: 20220704
  18. BEZAFIBRATE [Concomitant]
     Active Substance: BEZAFIBRATE
     Indication: Dyslipidaemia
     Dosage: START DATE TEXT: AROUND 2017 TO 2018
     Dates: start: 2017, end: 202206
  19. IRBESARTAN [Concomitant]
     Active Substance: IRBESARTAN
     Indication: Hypertension
     Dosage: 100 UNKNOWN
     Route: 048
     Dates: end: 20220704
  20. LEVOTHYROXINE SODIUM [Concomitant]
     Active Substance: LEVOTHYROXINE SODIUM
     Indication: Autoimmune thyroiditis
     Dosage: 100 MICROGRAM
     Route: 048

REACTIONS (16)
  - Peripheral T-cell lymphoma unspecified [Fatal]
  - Vaginal infection [Unknown]
  - Dermatitis [Unknown]
  - Haemophagocytic lymphohistiocytosis [Unknown]
  - Cellulitis [Unknown]
  - Drug eruption [Unknown]
  - Bacteraemia [Fatal]
  - Oral candidiasis [Unknown]
  - Erythema [Unknown]
  - Coronavirus infection [Unknown]
  - Septic shock [Fatal]
  - General physical health deterioration [Unknown]
  - Pancytopenia [Unknown]
  - Lymphocyte morphology abnormal [Unknown]
  - Colitis ulcerative [Unknown]
  - Granulocytopenia [Unknown]

NARRATIVE: CASE EVENT DATE: 20210728
